FAERS Safety Report 11400789 (Version 1)
Quarter: 2015Q3

REPORT INFORMATION
  Report Type: Report from Study
  Country: US (occurrence: US)
  Receive Date: 20150820
  Receipt Date: 20150820
  Transmission Date: 20151125
  Serious: Yes (Hospitalization)
  Sender: FDA-Public Use
  Company Number: US-ACTELION-A-US2015-122577

PATIENT
  Age: 8 Year
  Sex: Female

DRUGS (11)
  1. ZAVESCA [Suspect]
     Active Substance: MIGLUSTAT
     Indication: LIPIDOSIS
     Dosage: 100 MG, QID
     Route: 048
     Dates: start: 20121106
  2. CLONAZEPAM. [Concomitant]
     Active Substance: CLONAZEPAM
     Dosage: 0.125 UNK, BID
  3. VIMPAT [Concomitant]
     Active Substance: LACOSAMIDE
     Dosage: 15 ML, UNK
  4. ZONEGRAN [Concomitant]
     Active Substance: ZONISAMIDE
     Dosage: 100 MG, UNK
  5. ROBINUL [Concomitant]
     Active Substance: GLYCOPYRROLATE
     Dosage: 0.5 MG, UNK
  6. ONFI [Concomitant]
     Active Substance: CLOBAZAM
     Dosage: UNK, BID
  7. ZYRTEC [Concomitant]
     Active Substance: CETIRIZINE HYDROCHLORIDE
     Dosage: 5 ML, BID
  8. GABAPENTIN. [Concomitant]
     Active Substance: GABAPENTIN
     Dosage: 3 ML, TID
  9. PREVACID [Concomitant]
     Active Substance: LANSOPRAZOLE
     Dosage: UNK, PRN
  10. ALBUTEROL. [Concomitant]
     Active Substance: ALBUTEROL
     Dosage: 1 DOSE EVERY 3 HOURS
  11. AXID [Concomitant]
     Active Substance: NIZATIDINE
     Dosage: 5 ML, UNK

REACTIONS (1)
  - Seizure [Unknown]
